FAERS Safety Report 6724838-0 (Version None)
Quarter: 2010Q2

REPORT INFORMATION
  Report Type: 
  Country: None (occurrence: None)
  Receive Date: 20100513
  Receipt Date: 20100513
  Transmission Date: 20101027
  Serious: Yes (Life-Threatening, Hospitalization)
  Sender: FDA-Public Use
  Company Number: None

PATIENT
  Age: 77 Year
  Sex: Male
  Weight: 80.2867 kg

DRUGS (2)
  1. BACTRIM DS [Suspect]
     Indication: CELLULITIS
     Dosage: ONE TABLET BID PO
     Route: 048
     Dates: start: 20090306, end: 20090311
  2. COUMADIN [Suspect]
     Indication: ATRIAL FIBRILLATION
     Dosage: ONE TABLET DAILY PO
     Route: 048
     Dates: start: 20090201, end: 20090309

REACTIONS (2)
  - AMNESIA [None]
  - SUBDURAL HAEMATOMA [None]
